FAERS Safety Report 24433727 (Version 2)
Quarter: 2024Q4

REPORT INFORMATION
  Report Type: Spontaneous
  Country: IT (occurrence: IT)
  Receive Date: 20241014
  Receipt Date: 20241203
  Transmission Date: 20250115
  Serious: No
  Sender: TOLMAR
  Company Number: IT-RECORDATI-2024007450

PATIENT

DRUGS (1)
  1. ELIGARD [Suspect]
     Active Substance: LEUPROLIDE ACETATE
     Indication: Product used for unknown indication
     Dosage: 7.5 MILLIGRAM
     Dates: start: 20240902

REACTIONS (2)
  - Intercepted product preparation error [Unknown]
  - Device breakage [Unknown]

NARRATIVE: CASE EVENT DATE: 20240902
